FAERS Safety Report 4439971-6 (Version None)
Quarter: 2004Q3

REPORT INFORMATION
  Report Type: 
  Country: None (occurrence: None)
  Receive Date: 20040831
  Receipt Date: 20040816
  Transmission Date: 20050211
  Serious: Yes (Hospitalization)
  Sender: FDA-Public Use
  Company Number: 00P-056-0100672-00

PATIENT
  Sex: Male
  Weight: 1.3 kg

DRUGS (5)
  1. NORVIR SOFT GELATIN CAPSULES 9NOVIR) (RITONAVIR) [Suspect]
  2. LAMIVUDINE [Suspect]
  3. STAVUDINE [Suspect]
  4. ZIDOVUDINE [Suspect]
     Indication: PROPHYLAXIS AGAINST HIV INFECTION
     Dosage: ORAL
     Route: 048
  5. LAMIVUDINE [Suspect]
     Indication: PROPHYLAXIS AGAINST HIV INFECTION
     Dosage: ORAL
     Route: 048

REACTIONS (19)
  - AMYOTROPHY [None]
  - ANAEMIA NEONATAL [None]
  - BLOOD CREATINE PHOSPHOKINASE INCREASED [None]
  - COMPLICATIONS OF MATERNAL EXPOSURE TO THERAPEUTIC DRUGS [None]
  - DEVELOPMENTAL COORDINATION DISORDER [None]
  - DEVELOPMENTAL DELAY [None]
  - DRUG EXPOSURE DURING PREGNANCY [None]
  - DYSPRAXIA [None]
  - HEPATIC ENZYME INCREASED [None]
  - LOWER LIMB DEFORMITY [None]
  - MEDICATION ERROR [None]
  - MUSCLE ATROPHY [None]
  - MUSCULOSKELETAL DISORDER [None]
  - NEONATAL DISORDER [None]
  - NEONATAL RESPIRATORY DISTRESS SYNDROME [None]
  - OLIGOHYDRAMNIOS [None]
  - OVERDOSE [None]
  - PREMATURE BABY [None]
  - THROMBOCYTOPENIA [None]
